FAERS Safety Report 9490362 (Version 3)
Quarter: 2014Q1

REPORT INFORMATION
  Report Type: Spontaneous
  Country: BE (occurrence: BE)
  Receive Date: 20130830
  Receipt Date: 20140325
  Transmission Date: 20141002
  Serious: Yes (Other)
  Sender: FDA-Public Use
  Company Number: BE-AMGEN-BELSP2013060384

PATIENT
  Age: 71 Year
  Sex: Male
  Weight: 73 kg

DRUGS (2)
  1. XGEVA [Suspect]
     Indication: METASTASES TO BONE
     Dosage: 120 MUG, Q4WK
     Route: 058
     Dates: start: 20130725, end: 20130816
  2. METHYLPREDNISOLONE [Concomitant]
     Dosage: UNK
     Dates: start: 20120724

REACTIONS (1)
  - Osteonecrosis of jaw [Unknown]
